FAERS Safety Report 18644066 (Version 1)
Quarter: 2020Q4

REPORT INFORMATION
  Report Type: Spontaneous
  Country: US (occurrence: US)
  Receive Date: 20201221
  Receipt Date: 20201221
  Transmission Date: 20210114
  Serious: Yes (Other)
  Sender: FDA-Public Use
  Company Number: US-PURDUE-USA-2020-0168179

PATIENT
  Age: 46 Year
  Sex: Female

DRUGS (2)
  1. OXYCONTIN [Suspect]
     Active Substance: OXYCODONE HYDROCHLORIDE
     Dosage: UNKNOWN
     Route: 048
     Dates: start: 200001
  2. OXYCONTIN [Suspect]
     Active Substance: OXYCODONE HYDROCHLORIDE
     Indication: BACK PAIN
     Dosage: UNKNOWN
     Route: 048
     Dates: start: 199812, end: 199901

REACTIONS (8)
  - Overdose [Unknown]
  - Hypotension [Unknown]
  - Urticaria [Unknown]
  - Chest pain [Unknown]
  - Femoral artery aneurysm [Unknown]
  - Major depression [Unknown]
  - Condition aggravated [Unknown]
  - Fibromyalgia [Unknown]

NARRATIVE: CASE EVENT DATE: 199901
